FAERS Safety Report 21380148 (Version 1)
Quarter: 2022Q3

REPORT INFORMATION
  Report Type: Spontaneous
  Country: US (occurrence: US)
  Receive Date: 20220927
  Receipt Date: 20220927
  Transmission Date: 20221026
  Serious: Yes (Other)
  Sender: FDA-Public Use
  Company Number: US-009507513-2209USA007303

PATIENT
  Age: 62 Year
  Sex: Female

DRUGS (3)
  1. KEYTRUDA [Suspect]
     Active Substance: PEMBROLIZUMAB
     Indication: Lung adenocarcinoma stage III
     Dosage: UNK
  2. BEVACIZUMAB [Suspect]
     Active Substance: BEVACIZUMAB
     Indication: Lung adenocarcinoma stage III
     Dosage: UNK
  3. NIVOLUMAB [Suspect]
     Active Substance: NIVOLUMAB
     Indication: Lung adenocarcinoma stage III
     Dosage: UNK

REACTIONS (1)
  - Bone marrow failure [Unknown]
